FAERS Safety Report 5488977-7 (Version None)
Quarter: 2007Q4

REPORT INFORMATION
  Report Type: 
  Country: None (occurrence: None)
  Receive Date: 20071015
  Receipt Date: 20070625
  Transmission Date: 20080405
  Serious: No
  Sender: FDA-Public Use
  Company Number: 2007SP002355

PATIENT
  Age: 54 Year
  Sex: Female
  Weight: 77.1115 kg

DRUGS (7)
  1. LUNESTA [Suspect]
     Indication: SLEEP TERROR
     Dosage: 3 MG;1X;ORAL; 3 MG;1X;ORAL
     Route: 048
     Dates: start: 20070525, end: 20070525
  2. LUNESTA [Suspect]
     Indication: SLEEP TERROR
     Dosage: 3 MG;1X;ORAL; 3 MG;1X;ORAL
     Route: 048
     Dates: start: 20070528, end: 20070528
  3. LEXAPRO [Concomitant]
  4. VALSARTAN [Concomitant]
  5. PLAVIX [Concomitant]
  6. CELEBREX [Concomitant]
  7. ACETYLSALICYLIC ACID SRT [Concomitant]

REACTIONS (4)
  - ABNORMAL DREAMS [None]
  - DYSGEUSIA [None]
  - HEADACHE [None]
  - NAUSEA [None]
